FAERS Safety Report 23580206 (Version 1)
Quarter: 2024Q1

REPORT INFORMATION
  Report Type: Spontaneous
  Country: FR (occurrence: FR)
  Receive Date: 20240229
  Receipt Date: 20240229
  Transmission Date: 20240410
  Serious: Yes (Death)
  Sender: FDA-Public Use
  Company Number: None

PATIENT
  Age: 43 Year
  Sex: Female
  Weight: 51 kg

DRUGS (26)
  1. VALIUM [Suspect]
     Active Substance: DIAZEPAM
     Indication: Anxiety
     Dosage: VALIUM 10 MG/2 ML,
     Route: 050
     Dates: start: 20240209, end: 20240209
  2. IOBITRIDOL [Suspect]
     Active Substance: IOBITRIDOL
     Indication: Computerised tomogram head
     Dosage: XENETIX 350 (350 MG D^IODE/ML), SOLUTION INJECTABLE; IN TOTAL
     Route: 050
     Dates: start: 20240207, end: 20240207
  3. CEFTRIAXONE [Suspect]
     Active Substance: CEFTRIAXONE\CEFTRIAXONE SODIUM
     Indication: Infection
     Route: 050
     Dates: start: 20240207, end: 20240209
  4. SUFENTANIL CITRATE [Suspect]
     Active Substance: SUFENTANIL CITRATE
     Indication: Sedation
     Route: 050
     Dates: start: 20240209, end: 20240216
  5. IOMERON [Suspect]
     Active Substance: IOMEPROL
     Indication: Computerised tomogram head
     Dosage: IOMERON 400 (400 MG D^IODE/ML), SOLUTION INJECTABLE; IN TOTAL
     Route: 050
     Dates: start: 20240209, end: 20240209
  6. ACETAMINOPHEN [Suspect]
     Active Substance: ACETAMINOPHEN
     Indication: Pain
     Route: 050
     Dates: start: 20240207, end: 20240207
  7. TRAMADOL HYDROCHLORIDE [Suspect]
     Active Substance: TRAMADOL HYDROCHLORIDE
     Indication: Pain
     Route: 050
     Dates: start: 20240209, end: 20240212
  8. NOREPINEPHRINE BITARTRATE [Suspect]
     Active Substance: NOREPINEPHRINE BITARTRATE
     Indication: Haemodynamic instability
     Dosage: NORADRENALINE VIATRIS 2 MG/ML SULFITE-FREE, DILUTABLE SOLUTION FOR INFUSION
     Route: 050
     Dates: start: 20240207, end: 20240215
  9. CEFOTAXIME [Suspect]
     Active Substance: CEFOTAXIME SODIUM
     Indication: Infection
     Dosage: CEFOTAXIME VIATRIS 1 G, POWDER FOR SOLUTION FOR INJECTION (IM-IV)
     Route: 050
     Dates: start: 20240209, end: 20240213
  10. FUROSEMIDE [Suspect]
     Active Substance: FUROSEMIDE
     Indication: Product used for unknown indication
     Dosage: LASILIX 20 MG/2 ML, INJECTABLE SOLUTION IN AMPOULE; IN TOTAL
     Route: 050
     Dates: start: 20240208, end: 20240208
  11. METRONIDAZOLE [Suspect]
     Active Substance: METRONIDAZOLE
     Indication: Infection
     Route: 050
     Dates: start: 20240207, end: 20240213
  12. ACUPAN [Suspect]
     Active Substance: NEFOPAM HYDROCHLORIDE
     Indication: Product used for unknown indication
     Dosage: ; IN TOTAL
     Route: 050
     Dates: start: 20240207, end: 20240209
  13. MIDAZOLAM [Suspect]
     Active Substance: MIDAZOLAM
     Indication: Sedation
     Dosage: MIDAZOLAM VIATRIS 5 MG/ML, SOLUTION INJECTABLE OR RECTAL
     Route: 050
     Dates: start: 20240209, end: 20240209
  14. VITAMIN B6 [Concomitant]
     Active Substance: PYRIDOXINE HYDROCHLORIDE
     Indication: Product used for unknown indication
  15. LIDOCAINE [Concomitant]
     Active Substance: LIDOCAINE
     Indication: Product used for unknown indication
  16. PROPOFOL [Concomitant]
     Active Substance: PROPOFOL
     Indication: Product used for unknown indication
  17. PHOSPHATE DIPOTASSIQUE [Concomitant]
     Indication: Product used for unknown indication
  18. MAGNESIUM [Concomitant]
     Active Substance: MAGNESIUM
     Indication: Product used for unknown indication
  19. INSULIN NOS [Concomitant]
     Active Substance: INSULIN NOS
     Indication: Product used for unknown indication
  20. PHYTONADIONE [Concomitant]
     Active Substance: PHYTONADIONE
     Indication: Product used for unknown indication
  21. AMOXICILLIN [Concomitant]
     Active Substance: AMOXICILLIN
     Indication: Product used for unknown indication
  22. CALCIUM ACETATE [Concomitant]
     Active Substance: CALCIUM ACETATE
     Indication: Product used for unknown indication
  23. PANTOPRAZOLE [Concomitant]
     Active Substance: PANTOPRAZOLE
     Indication: Product used for unknown indication
  24. POTASSIUM [Concomitant]
     Active Substance: POTASSIUM
     Indication: Product used for unknown indication
  25. THIAMINE HYDROCHLORIDE [Concomitant]
     Active Substance: THIAMINE HYDROCHLORIDE
     Indication: Product used for unknown indication
  26. HEPARIN CALCIUM [Concomitant]
     Active Substance: HEPARIN CALCIUM
     Indication: Product used for unknown indication

REACTIONS (1)
  - Toxic epidermal necrolysis [Fatal]

NARRATIVE: CASE EVENT DATE: 20240214
